FAERS Safety Report 17555602 (Version 2)
Quarter: 2021Q4

REPORT INFORMATION
  Report Type: Other
  Country: IT (occurrence: IT)
  Receive Date: 20200318
  Receipt Date: 20211007
  Transmission Date: 20220303
  Serious: Yes (Hospitalization)
  Sender: FDA-Public Use
  Company Number: IT-MERCK HEALTHCARE KGAA-9151819

PATIENT
  Age: 59 Year
  Sex: Male

DRUGS (1)
  1. INTERFERON BETA-1A [Suspect]
     Active Substance: INTERFERON BETA-1A
     Indication: Multiple sclerosis
     Dosage: 12 MILLION UNITS IU

REACTIONS (2)
  - Angina unstable [Unknown]
  - Coronary artery disease [Unknown]
